FAERS Safety Report 23480327 (Version 1)
Quarter: 2024Q1

REPORT INFORMATION
  Report Type: Spontaneous
  Country: DE (occurrence: DE)
  Receive Date: 20240205
  Receipt Date: 20240205
  Transmission Date: 20240409
  Serious: No
  Sender: FDA-Public Use
  Company Number: None

PATIENT
  Age: 59 Year
  Sex: Female
  Weight: 56 kg

DRUGS (2)
  1. EZETIMIBE [Suspect]
     Active Substance: EZETIMIBE
     Indication: Coronary artery disease
     Dosage: UNK
     Route: 048
     Dates: start: 20160201, end: 20160210
  2. EZETIMIBE [Suspect]
     Active Substance: EZETIMIBE
     Dosage: UNK (RECHALLENGED DOSE)
     Route: 065

REACTIONS (2)
  - Restless legs syndrome [Recovered/Resolved]
  - Pain in extremity [Recovered/Resolved]

NARRATIVE: CASE EVENT DATE: 20160201
